FAERS Safety Report 15587518 (Version 1)
Quarter: 2018Q4

REPORT INFORMATION
  Report Type: Spontaneous
  Country: US (occurrence: US)
  Receive Date: 20181106
  Receipt Date: 20181106
  Transmission Date: 20190205
  Serious: Yes (Hospitalization)
  Sender: FDA-Public Use
  Company Number: None

PATIENT
  Age: 68 Year
  Sex: Male

DRUGS (16)
  1. ASPIRIN 325MG [Concomitant]
     Active Substance: ASPIRIN
  2. PIOGLITAZONE 15MG [Concomitant]
  3. ALENDRONATE 70MG [Concomitant]
     Active Substance: ALENDRONATE SODIUM
  4. METFORMIN 500MG [Concomitant]
     Active Substance: METFORMIN HYDROCHLORIDE
  5. GABAPENTIN 300MG [Concomitant]
     Active Substance: GABAPENTIN
  6. GLIPIZIDE 10MG [Concomitant]
  7. LUPRON DEPOT [Concomitant]
     Active Substance: LEUPROLIDE ACETATE
  8. BACTRIM DS [Concomitant]
     Active Substance: SULFAMETHOXAZOLE\TRIMETHOPRIM
  9. ZYTIGA [Suspect]
     Active Substance: ABIRATERONE ACETATE
     Indication: PROSTATE CANCER
     Route: 048
     Dates: start: 20180503
  10. NAPROXEN 250MG [Concomitant]
     Active Substance: NAPROXEN
  11. PREDNISONE 10MG [Concomitant]
     Active Substance: PREDNISONE
  12. ELIQUIS [Concomitant]
     Active Substance: APIXABAN
  13. LISINOPRIL. [Concomitant]
     Active Substance: LISINOPRIL
  14. OMEPRAZOLE 20MG [Concomitant]
     Active Substance: OMEPRAZOLE
  15. AMLODIPINE [Concomitant]
     Active Substance: AMLODIPINE BESYLATE
  16. ROSUVASTATIN 40MG [Concomitant]
     Active Substance: ROSUVASTATIN

REACTIONS (3)
  - Urinary tract infection [None]
  - Sepsis [None]
  - Atrial fibrillation [None]

NARRATIVE: CASE EVENT DATE: 20180815
